FAERS Safety Report 12545603 (Version 5)
Quarter: 2016Q3

REPORT INFORMATION
  Report Type: Report from Study
  Country: AU (occurrence: AU)
  Receive Date: 20160711
  Receipt Date: 20160730
  Transmission Date: 20161109
  Serious: Yes (Death, Hospitalization)
  Sender: FDA-Public Use
  Company Number: AU-ABBVIE-16K-008-1671183-00

PATIENT
  Age: 74 Year
  Sex: Male

DRUGS (2)
  1. DUODOPA [Suspect]
     Active Substance: CARBIDOPA\LEVODOPA
     Indication: PARKINSON^S DISEASE
     Dosage: 24 HOUR INFUSION
     Route: 050
     Dates: start: 20111016
  2. CLOZAPINE. [Concomitant]
     Active Substance: CLOZAPINE
     Indication: PSYCHOTIC DISORDER
     Route: 048
     Dates: start: 201503, end: 20160707

REACTIONS (2)
  - Device breakage [Recovered/Resolved]
  - Death [Fatal]

NARRATIVE: CASE EVENT DATE: 201508
